FAERS Safety Report 10070321 (Version 1)
Quarter: 2014Q2

REPORT INFORMATION
  Report Type: Spontaneous
  Country: US (occurrence: None)
  Receive Date: 20140409
  Receipt Date: 20140409
  Transmission Date: 20141212
  Serious: Yes (Congenital Anomaly)
  Sender: FDA-Public Use
  Company Number: None

PATIENT
  Age: 68 Year
  Sex: Male

DRUGS (1)
  1. DALTEPARIN [Suspect]
     Indication: DEEP VEIN THROMBOSIS
     Dosage: 5000 UNITS, EVERY DAY, SQ
     Dates: start: 20130802, end: 20140227

REACTIONS (6)
  - International normalised ratio increased [None]
  - Anaemia [None]
  - Haematuria [None]
  - Haemoglobin decreased [None]
  - Haemorrhage [None]
  - Implant site haemorrhage [None]
